FAERS Safety Report 18115144 (Version 1)
Quarter: 2020Q3

REPORT INFORMATION
  Report Type: Spontaneous
  Country: US (occurrence: US)
  Receive Date: 20200805
  Receipt Date: 20200805
  Transmission Date: 20201103
  Serious: Yes (Other)
  Sender: FDA-Public Use
  Company Number: US-MYLANLABS-2020M1069153

PATIENT
  Sex: Male

DRUGS (1)
  1. RANITIDINE TABLETS, USP [Suspect]
     Active Substance: RANITIDINE
     Dosage: UNK (FROM APPROXIMATELY 2015 TO 2019)

REACTIONS (1)
  - Bladder cancer [Unknown]

NARRATIVE: CASE EVENT DATE: 20180724
